FAERS Safety Report 10735332 (Version 1)
Quarter: 2015Q1

REPORT INFORMATION
  Report Type: Spontaneous
  Country: US (occurrence: US)
  Receive Date: 20150125
  Receipt Date: 20150125
  Transmission Date: 20150721
  Serious: Yes (Other)
  Sender: FDA-Public Use
  Company Number: US-JNJFOC-20150109430

PATIENT
  Age: 26 Year
  Sex: Male
  Weight: 140.62 kg

DRUGS (2)
  1. APAP [Suspect]
     Active Substance: ACETAMINOPHEN
     Route: 048
  2. APAP [Suspect]
     Active Substance: ACETAMINOPHEN
     Indication: SUICIDE ATTEMPT
     Dosage: 16 ^PLUS^ GRAMS
     Route: 048
     Dates: start: 200510

REACTIONS (4)
  - Nausea [Unknown]
  - Vomiting [Unknown]
  - Intentional overdose [Unknown]
  - Prothrombin time prolonged [Recovering/Resolving]
